FAERS Safety Report 5396511-5 (Version None)
Quarter: 2007Q3

REPORT INFORMATION
  Report Type: 
  Country: None (occurrence: None)
  Receive Date: 20070718
  Receipt Date: 20061127
  Transmission Date: 20080115
  Serious: Yes (Hospitalization, Other)
  Sender: FDA-Public Use
  Company Number: 2006146897

PATIENT
  Sex: Male
  Weight: 88.905 kg

DRUGS (5)
  1. CELEBREX [Suspect]
     Indication: RHEUMATOID ARTHRITIS
     Dosage: 400 MG (200 MG,2 IN 1 D)
  2. HUMIRA [Suspect]
     Indication: PAIN
  3. EC-NAPROSYN [Suspect]
     Indication: RHEUMATOID ARTHRITIS
     Dates: end: 20060101
  4. ALL OTHER THERAPEUTIC PRODUCTS (ALL OTHER THERAPEUTIC PRODUCTS) [Suspect]
     Indication: PAIN
  5. ACETYLSALICYLIC ACID SRT [Concomitant]

REACTIONS (6)
  - DRUG INEFFECTIVE [None]
  - JOINT INJURY [None]
  - MYOCARDIAL INFARCTION [None]
  - PAIN [None]
  - SWELLING [None]
  - URTICARIA [None]
